FAERS Safety Report 6620253-9 (Version None)
Quarter: 2010Q1

REPORT INFORMATION
  Report Type: 
  Country: None (occurrence: None)
  Receive Date: 20100309
  Receipt Date: 20061030
  Transmission Date: 20100710
  Serious: Yes (Life-Threatening, Hospitalization)
  Sender: FDA-Public Use
  Company Number: HQWYE998331OCT06

PATIENT
  Age: 68 Year
  Sex: Female
  Weight: 64.92 kg

DRUGS (4)
  1. NEUMEGA [Suspect]
     Indication: THROMBOCYTOPENIA
     Dosage: 5 MG
     Route: 058
     Dates: start: 20061019, end: 20061024
  2. LEUCOVORIN CALCIUM [Concomitant]
     Indication: COLORECTAL CANCER
     Dosage: ^FOLFOX^ DOSE NOT PROVIDED
  3. OXALIPLATIN [Concomitant]
     Indication: COLORECTAL CANCER
     Dosage: ^FOLFOX^ DOSE NOT PROVIDED
  4. FLUOROURACIL [Concomitant]
     Indication: COLORECTAL CANCER
     Dosage: ^FOLFOX^ DOSE NOT PROVIDED

REACTIONS (4)
  - ATRIAL TACHYCARDIA [None]
  - CARDIAC ENZYMES INCREASED [None]
  - DERMATITIS [None]
  - PALPITATIONS [None]
